FAERS Safety Report 6905951-1 (Version None)
Quarter: 2010Q3

REPORT INFORMATION
  Report Type: 
  Country: None (occurrence: None)
  Receive Date: 20100804
  Receipt Date: 20100727
  Transmission Date: 20110219
  Serious: Yes (Death)
  Sender: FDA-Public Use
  Company Number: US-JNJCH-2009031638

PATIENT
  Age: 18 Month
  Sex: Male
  Weight: 10 kg

DRUGS (1)
  1. ASPIRIN [Suspect]
     Indication: UPPER RESPIRATORY TRACT INFECTION
     Dosage: TEXT:81 MG EVERY 4-6 HR X 2 D
     Route: 048

REACTIONS (3)
  - SEPTIC SHOCK [None]
  - THERAPEUTIC AGENT TOXICITY [None]
  - WRONG DRUG ADMINISTERED [None]
